FAERS Safety Report 14380851 (Version 1)
Quarter: 2018Q1

REPORT INFORMATION
  Report Type: Report from Study
  Country: US (occurrence: US)
  Receive Date: 20180112
  Receipt Date: 20180112
  Transmission Date: 20180509
  Serious: Yes (Death, Other)
  Sender: FDA-Public Use
  Company Number: US-BAYER-2018-002896

PATIENT

DRUGS (3)
  1. ZOSYN [Suspect]
     Active Substance: PIPERACILLIN SODIUM\TAZOBACTAM SODIUM
     Indication: OTITIS EXTERNA
     Dosage: UNK
  2. CIPROFLOXACIN. [Suspect]
     Active Substance: CIPROFLOXACIN
     Indication: OTITIS EXTERNA
  3. CEFEPIME [Suspect]
     Active Substance: CEFEPIME HYDROCHLORIDE
     Indication: OTITIS EXTERNA
     Dosage: UNK

REACTIONS (8)
  - Multiple-drug resistance [None]
  - Pathogen resistance [None]
  - Facial paralysis [None]
  - Treatment failure [None]
  - Death [Fatal]
  - Paralysis [None]
  - Subcutaneous abscess [None]
  - Dementia [None]
